APPROVED DRUG PRODUCT: HYDRALAZINE HYDROCHLORIDE
Active Ingredient: HYDRALAZINE HYDROCHLORIDE
Strength: 10MG
Dosage Form/Route: TABLET;ORAL
Application: A090527 | Product #001 | TE Code: AA
Applicant: GLENMARK PHARMACEUTICALS LTD
Approved: May 29, 2009 | RLD: No | RS: No | Type: RX